FAERS Safety Report 9775721 (Version 1)
Quarter: 2013Q4

REPORT INFORMATION
  Report Type: Spontaneous
  Country: DE (occurrence: DE)
  Receive Date: 20131220
  Receipt Date: 20131220
  Transmission Date: 20140711
  Serious: Yes (Other)
  Sender: FDA-Public Use
  Company Number: DE-BRISTOL-MYERS SQUIBB COMPANY-19919174

PATIENT
  Sex: Female

DRUGS (1)
  1. ELIQUIS [Suspect]

REACTIONS (2)
  - Cerebral haemorrhage [Unknown]
  - Fall [Unknown]
